FAERS Safety Report 14941772 (Version 1)
Quarter: 2018Q2

REPORT INFORMATION
  Report Type: Spontaneous
  Country: US (occurrence: US)
  Receive Date: 20180527
  Receipt Date: 20180527
  Transmission Date: 20180711
  Serious: No
  Sender: FDA-Public Use
  Company Number: US-JNJFOC-20180512787

PATIENT
  Age: 34 Year
  Sex: Male
  Weight: 83.92 kg

DRUGS (10)
  1. VYVANSE [Concomitant]
     Active Substance: LISDEXAMFETAMINE DIMESYLATE
     Dosage: 50-150 MG AS NEEDED, TRYING TO CUT DOWN
     Route: 048
  2. LIALDA [Concomitant]
     Active Substance: MESALAMINE
     Route: 048
  3. OXYCODONE AND ACETAMINOPHEN [Concomitant]
     Active Substance: ACETAMINOPHEN\OXYCODONE HYDROCHLORIDE
     Dosage: AS NEEDED - AT LEAST ONCE A DAY
     Route: 048
  4. TIZANIDINE. [Concomitant]
     Active Substance: TIZANIDINE
     Route: 048
  5. SIMPONI [Suspect]
     Active Substance: GOLIMUMAB
     Indication: COLITIS ULCERATIVE
     Route: 058
     Dates: start: 2017
  6. MIRTAZAPINE. [Concomitant]
     Active Substance: MIRTAZAPINE
     Dosage: AT NIGHT
     Route: 048
  7. PHENERGAN [Concomitant]
     Active Substance: PROMETHAZINE HYDROCHLORIDE
     Dosage: AS NEEDED
     Route: 048
  8. ATIVAN [Concomitant]
     Active Substance: LORAZEPAM
     Dosage: AS NEEDED
     Route: 048
  9. TURMERIC [Concomitant]
     Active Substance: HERBALS\TURMERIC
     Route: 048
  10. SIMPONI [Suspect]
     Active Substance: GOLIMUMAB
     Indication: COLITIS ULCERATIVE
     Route: 058
     Dates: start: 2014, end: 201504

REACTIONS (4)
  - Gait inability [Recovered/Resolved]
  - Pain in extremity [Recovered/Resolved]
  - Inappropriate schedule of drug administration [Unknown]
  - Product storage error [Unknown]

NARRATIVE: CASE EVENT DATE: 20180420
